FAERS Safety Report 8112498-6 (Version None)
Quarter: 2012Q1

REPORT INFORMATION
  Report Type: 
  Country: None (occurrence: None)
  Receive Date: 20120203
  Receipt Date: 20120130
  Transmission Date: 20120608
  Serious: Yes (Other)
  Sender: FDA-Public Use
  Company Number: US-AMGEN-USASP2012006206

PATIENT
  Age: 71 Year
  Sex: Male

DRUGS (2)
  1. ENBREL [Suspect]
     Indication: ARTHRITIS INFECTIVE
     Dosage: 50 MG, QWK
     Dates: start: 19980101
  2. METHOTREXATE [Concomitant]
     Dosage: 3 MG, QWK
     Dates: start: 19980101

REACTIONS (1)
  - PROSTATE CANCER [None]
